FAERS Safety Report 9522673 (Version 1)
Quarter: 2013Q1

REPORT INFORMATION
  Report Type: Spontaneous
  Country: US (occurrence: None)
  Receive Date: 20130305
  Receipt Date: 20130305
  Transmission Date: 20140127
  Serious: Yes (Hospitalization, Other)
  Sender: FDA-Public Use
  Company Number: 163-21880-12032287

PATIENT
  Age: 55 Year
  Sex: Male

DRUGS (10)
  1. REVLIMID [Suspect]
     Indication: PLASMA CELL MYELOMA
     Dosage: 10 MG,  1 IN 1 D,  PO
     Route: 048
     Dates: start: 200811, end: 201012
  2. LEUKINE (SARGRAMOSTIM) [Concomitant]
  3. MS CONTIN [Concomitant]
  4. HYDROCODONE (HYDROCODONE) [Concomitant]
  5. OXYCODONE (OXYCODONE) [Concomitant]
  6. SENOKOT-S (SENOKOT-S) [Concomitant]
  7. ZOFRAN (ONDANSETRON HYDROCHLORIDE) [Concomitant]
  8. ACETAMINOPHEN (PARACETAMOL) [Concomitant]
  9. VELCADE (BORTEZOMIB) [Concomitant]
  10. DEXAMETHASONE (DEXAMETHASONE) [Concomitant]

REACTIONS (4)
  - Compression fracture [None]
  - Back pain [None]
  - Pancytopenia [None]
  - No therapeutic response [None]
